FAERS Safety Report 7491854-3 (Version None)
Quarter: 2011Q2

REPORT INFORMATION
  Report Type: 
  Country: None (occurrence: None)
  Receive Date: 20110512
  Receipt Date: 20110426
  Transmission Date: 20111010
  Serious: Yes (Other)
  Sender: FDA-Public Use
  Company Number: JPI-P-014758

PATIENT
  Age: 25 Year
  Sex: Male
  Weight: 55.7924 kg

DRUGS (4)
  1. XYREM [Suspect]
     Indication: SOMNOLENCE
     Dosage: 4.5 GM (2.25 GM,2 IN 1 D),ORAL, ORAL ,   9 GM (9 GM,1 IN 1 D), ORAL
     Route: 048
     Dates: start: 20070901
  2. XYREM [Suspect]
     Indication: CATAPLEXY
     Dosage: 4.5 GM (2.25 GM,2 IN 1 D),ORAL, ORAL ,   9 GM (9 GM,1 IN 1 D), ORAL
     Route: 048
     Dates: start: 20070901
  3. XYREM [Suspect]
     Indication: SOMNOLENCE
     Dosage: 4.5 GM (2.25 GM,2 IN 1 D),ORAL, ORAL ,   9 GM (9 GM,1 IN 1 D), ORAL
     Route: 048
     Dates: start: 20101013
  4. XYREM [Suspect]
     Indication: CATAPLEXY
     Dosage: 4.5 GM (2.25 GM,2 IN 1 D),ORAL, ORAL ,   9 GM (9 GM,1 IN 1 D), ORAL
     Route: 048
     Dates: start: 20101013

REACTIONS (8)
  - OCULAR HYPERAEMIA [None]
  - VISION BLURRED [None]
  - ACCIDENT [None]
  - NERVE INJURY [None]
  - NECK INJURY [None]
  - INITIAL INSOMNIA [None]
  - SPINAL FRACTURE [None]
  - SOMNOLENCE [None]
